FAERS Safety Report 18728052 (Version 2)
Quarter: 2021Q1

REPORT INFORMATION
  Report Type: Spontaneous
  Country: IT (occurrence: IT)
  Receive Date: 20210111
  Receipt Date: 20210304
  Transmission Date: 20210419
  Serious: Yes (Death, Hospitalization, Other)
  Sender: FDA-Public Use
  Company Number: IT-009507513-2101ITA001400

PATIENT
  Age: 42 Year
  Sex: Male

DRUGS (1)
  1. PEMBROLIZUMAB. [Suspect]
     Active Substance: PEMBROLIZUMAB
     Indication: THYMOMA
     Dosage: 2 MILLIGRAM/KILOGRAM, EVERY 21

REACTIONS (5)
  - Off label use [Unknown]
  - Lymphocytosis [Recovered/Resolved]
  - Immune-mediated thyroiditis [Unknown]
  - Immune thrombocytopenia [Not Recovered/Not Resolved]
  - Immune-mediated hepatitis [Fatal]
